FAERS Safety Report 13353663 (Version 2)
Quarter: 2017Q1

REPORT INFORMATION
  Report Type: Spontaneous
  Country: DE (occurrence: DE)
  Receive Date: 20170321
  Receipt Date: 20170329
  Transmission Date: 20170429
  Serious: Yes (Other)
  Sender: FDA-Public Use
  Company Number: DE-AMGEN-DEUSP2017041628

PATIENT

DRUGS (2)
  1. FOLIC ACID. [Concomitant]
     Active Substance: FOLIC ACID
     Indication: EXPOSURE DURING PREGNANCY
     Dosage: UNK
     Route: 064
     Dates: start: 201612
  2. ENBREL [Suspect]
     Active Substance: ETANERCEPT
     Indication: EXPOSURE DURING PREGNANCY
     Dosage: 50 MG, 1X/WEEK
     Route: 064
     Dates: start: 20140923, end: 201612

REACTIONS (1)
  - Maternal exposure during pregnancy [Unknown]
